FAERS Safety Report 23522567 (Version 1)
Quarter: 2024Q1

REPORT INFORMATION
  Report Type: Spontaneous
  Country: ES (occurrence: ES)
  Receive Date: 20240214
  Receipt Date: 20240214
  Transmission Date: 20240410
  Serious: Yes (Other)
  Sender: FDA-Public Use
  Company Number: ES-Gedeon Richter Plc.-2024_GR_000869

PATIENT
  Age: 45 Year
  Sex: Female

DRUGS (2)
  1. ESTRADIOL\NORETHINDRONE ACETATE\RELUGOLIX [Suspect]
     Active Substance: ESTRADIOL\NORETHINDRONE ACETATE\RELUGOLIX
     Indication: Uterine leiomyoma
     Dosage: 1 TAB, QD (1/24H)
     Route: 048
     Dates: start: 20231212, end: 20231223
  2. ESTRADIOL\NORETHINDRONE ACETATE\RELUGOLIX [Suspect]
     Active Substance: ESTRADIOL\NORETHINDRONE ACETATE\RELUGOLIX
     Indication: Heavy menstrual bleeding

REACTIONS (3)
  - Laryngeal oedema [Recovered/Resolved]
  - Conjunctivitis allergic [Recovered/Resolved]
  - Oral pruritus [Unknown]

NARRATIVE: CASE EVENT DATE: 20231223
